FAERS Safety Report 6389700-4 (Version None)
Quarter: 2009Q4

REPORT INFORMATION
  Report Type: 
  Country: None (occurrence: None)
  Receive Date: 20091006
  Receipt Date: 20090929
  Transmission Date: 20100525
  Serious: Yes (Hospitalization)
  Sender: FDA-Public Use
  Company Number: JP-BAYER-200913642BYL

PATIENT
  Age: 74 Year
  Sex: Male
  Weight: 50 kg

DRUGS (6)
  1. NEXAVAR [Suspect]
     Indication: HEPATIC NEOPLASM MALIGNANT
     Dosage: UNIT DOSE: 200 MG
     Route: 048
     Dates: start: 20090724, end: 20090803
  2. AMLODIPINE [Concomitant]
     Route: 048
     Dates: start: 19990101
  3. ALOSITOL [Concomitant]
     Route: 048
     Dates: start: 19990101
  4. JUZENTAIHOTO [Concomitant]
     Route: 048
     Dates: start: 20040101
  5. OMEPRAL [Concomitant]
     Route: 048
     Dates: start: 20040101
  6. PROMAC [Concomitant]
     Route: 048
     Dates: start: 20040101

REACTIONS (1)
  - STEVENS-JOHNSON SYNDROME [None]
